FAERS Safety Report 6251891-3 (Version None)
Quarter: 2009Q2

REPORT INFORMATION
  Report Type: 
  Country: None (occurrence: None)
  Receive Date: 20090630
  Receipt Date: 20090625
  Transmission Date: 20091009
  Serious: Yes (Other)
  Sender: FDA-Public Use
  Company Number: FR-GILEAD-2009-0020665

PATIENT

DRUGS (1)
  1. HEPSERA [Suspect]
     Indication: DRUG USE FOR UNKNOWN INDICATION

REACTIONS (2)
  - CREATININE RENAL CLEARANCE DECREASED [None]
  - FANCONI SYNDROME ACQUIRED [None]
